FAERS Safety Report 22227039 (Version 4)
Quarter: 2024Q3

REPORT INFORMATION
  Report Type: Report from Study
  Country: US (occurrence: US)
  Receive Date: 20230419
  Receipt Date: 20240814
  Transmission Date: 20241016
  Serious: Yes (Hospitalization, Other)
  Sender: UCB
  Company Number: US-UCBSA-2023003671

PATIENT
  Age: 74 Year
  Sex: Male

DRUGS (1)
  1. LEVETIRACETAM [Suspect]
     Active Substance: LEVETIRACETAM
     Indication: Seizure
     Dosage: 750 MILLIGRAM, 3X/DAY (TID)

REACTIONS (8)
  - Urinary tract infection [Recovered/Resolved]
  - Road traffic accident [Not Recovered/Not Resolved]
  - Surgery [Unknown]
  - Upper limb fracture [Recovered/Resolved]
  - Rehabilitation therapy [Unknown]
  - Nasopharyngitis [Not Recovered/Not Resolved]
  - Gait inability [Not Recovered/Not Resolved]
  - Walking aid user [Not Recovered/Not Resolved]

NARRATIVE: CASE EVENT DATE: 20230311
